FAERS Safety Report 15815171 (Version 1)
Quarter: 2019Q1

REPORT INFORMATION
  Report Type: Report from Study
  Country: HR (occurrence: HR)
  Receive Date: 20190112
  Receipt Date: 20190112
  Transmission Date: 20190417
  Serious: Yes (Death, Life-Threatening, Other)
  Sender: FDA-Public Use
  Company Number: HR-ACCORD-101654

PATIENT
  Age: 61 Year
  Sex: Male
  Weight: 84 kg

DRUGS (2)
  1. DECITABINE. [Suspect]
     Active Substance: DECITABINE
     Indication: ACUTE MYELOID LEUKAEMIA
     Route: 042
     Dates: start: 20170325, end: 20170403
  2. FLUDARABINE/FLUDARABINE PHOSPHATE [Suspect]
     Active Substance: FLUDARABINE PHOSPHATE
     Indication: BONE MARROW CONDITIONING REGIMEN
     Route: 042
     Dates: start: 20170401, end: 20170403

REACTIONS (26)
  - Lactic acidosis [Fatal]
  - Bronchospasm [Recovered/Resolved]
  - Abdominal distension [Fatal]
  - Septic shock [Fatal]
  - Fungal infection [Fatal]
  - Dyspnoea [Fatal]
  - Anuria [Fatal]
  - Pneumonia [Fatal]
  - Fluid retention [Fatal]
  - Hypotension [Fatal]
  - Graft versus host disease in skin [Fatal]
  - Acute kidney injury [Fatal]
  - Oliguria [Fatal]
  - Febrile neutropenia [Fatal]
  - Klebsiella infection [Fatal]
  - Diarrhoea [Fatal]
  - Neutropenic colitis [Fatal]
  - Ileus paralytic [Fatal]
  - Multiple organ dysfunction syndrome [Fatal]
  - Respiratory alkalosis [Fatal]
  - Gastrointestinal injury [Fatal]
  - Respiratory failure [Fatal]
  - Pseudomonas infection [Fatal]
  - Rash macular [Fatal]
  - Pulmonary mass [Fatal]
  - Enterococcal infection [Fatal]

NARRATIVE: CASE EVENT DATE: 201704
